FAERS Safety Report 6181250-3 (Version None)
Quarter: 2009Q2

REPORT INFORMATION
  Report Type: 
  Country: None (occurrence: None)
  Receive Date: 20090501
  Receipt Date: 20090319
  Transmission Date: 20091009
  Serious: No
  Sender: FDA-Public Use
  Company Number: 2009002055

PATIENT
  Age: 70 Year
  Sex: Female

DRUGS (2)
  1. TREANDA [Suspect]
     Indication: CHRONIC LYMPHOCYTIC LEUKAEMIA
     Dosage: INTRAVENOUS : (70 MG/M2) , INTRAVENOUS
     Route: 042
     Dates: start: 20090201
  2. ALLOPURINOL [Concomitant]

REACTIONS (3)
  - RASH [None]
  - STOMATITIS [None]
  - WEIGHT DECREASED [None]
